FAERS Safety Report 5824576-2 (Version None)
Quarter: 2008Q3

REPORT INFORMATION
  Report Type: 
  Country: None (occurrence: None)
  Receive Date: 20080728
  Receipt Date: 20080130
  Transmission Date: 20090109
  Serious: No
  Sender: FDA-Public Use
  Company Number: US-BAYER-200810476BCC

PATIENT
  Age: 50 Year
  Sex: Female
  Weight: 113 kg

DRUGS (3)
  1. ALEVE (CAPLET) [Suspect]
     Indication: DYSMENORRHOEA
     Dosage: UNIT DOSE: 220 MG
     Route: 048
     Dates: start: 20080129
  2. IBUPROFEN [Concomitant]
     Indication: DYSMENORRHOEA
     Dosage: AS USED: 800 MG  UNIT DOSE: 800 MG
     Route: 048
     Dates: start: 20080129
  3. EXTRA STRENGTH TYLENOL [Concomitant]
     Indication: DYSMENORRHOEA
     Dates: start: 20080130

REACTIONS (3)
  - ABDOMINAL PAIN [None]
  - DYSMENORRHOEA [None]
  - NAUSEA [None]
